FAERS Safety Report 14574554 (Version 1)
Quarter: 2018Q1

REPORT INFORMATION
  Report Type: Spontaneous
  Country: US (occurrence: US)
  Receive Date: 20180224
  Receipt Date: 20180224
  Transmission Date: 20180509
  Serious: Yes (Other)
  Sender: FDA-Public Use
  Company Number: None

PATIENT
  Age: 30 Year
  Sex: Female
  Weight: 78.3 kg

DRUGS (4)
  1. TOPIRAMATE. [Concomitant]
     Active Substance: TOPIRAMATE
  2. LEVOTHYROXIN [Concomitant]
     Active Substance: LEVOTHYROXINE
  3. PHENTERMINE. [Concomitant]
     Active Substance: PHENTERMINE
  4. WOMENS GENTLE LAXATIVE [Suspect]
     Active Substance: BISACODYL
     Indication: CONSTIPATION
     Route: 048

REACTIONS (8)
  - Dizziness [None]
  - Visual impairment [None]
  - Abdominal discomfort [None]
  - Hyperhidrosis [None]
  - Abdominal pain upper [None]
  - Loss of consciousness [None]
  - Impaired work ability [None]
  - Pallor [None]

NARRATIVE: CASE EVENT DATE: 20180219
